FAERS Safety Report 4605029-6 (Version None)
Quarter: 2005Q1

REPORT INFORMATION
  Report Type: 
  Country: None (occurrence: None)
  Receive Date: 20050311
  Receipt Date: 20040405
  Transmission Date: 20050727
  Serious: Yes (Hospitalization)
  Sender: FDA-Public Use
  Company Number: 200411168JP

PATIENT
  Sex: 0

DRUGS (1)
  1. AMARYL [Suspect]
     Dosage: DOSE: 2 TABLETS
     Route: 048
     Dates: start: 20040403, end: 20040405

REACTIONS (3)
  - DEPRESSED LEVEL OF CONSCIOUSNESS [None]
  - HYPOGLYCAEMIA [None]
  - MEDICATION ERROR [None]
